FAERS Safety Report 13335395 (Version 1)
Quarter: 2017Q1

REPORT INFORMATION
  Report Type: Spontaneous
  Country: US (occurrence: US)
  Receive Date: 20170315
  Receipt Date: 20170315
  Transmission Date: 20170428
  Serious: Yes (Hospitalization)
  Sender: FDA-Public Use
  Company Number: US-BEH-2017078665

PATIENT
  Sex: Female
  Weight: 71.2 kg

DRUGS (28)
  1. CETIRIZINE [Concomitant]
     Active Substance: CETIRIZINE HYDROCHLORIDE
  2. ACIDOPHILUS [Concomitant]
     Active Substance: LACTOBACILLUS ACIDOPHILUS
  3. IMURAN [Concomitant]
     Active Substance: AZATHIOPRINE
  4. LIDOCAINE/PRILOCAINE [Concomitant]
     Active Substance: LIDOCAINE\PRILOCAINE
  5. EPIPEN [Concomitant]
     Active Substance: EPINEPHRINE
  6. METFORMIN [Concomitant]
     Active Substance: METFORMIN HYDROCHLORIDE
  7. VENLAFAXINE [Concomitant]
     Active Substance: VENLAFAXINE HYDROCHLORIDE
  8. GUANFACINE. [Concomitant]
     Active Substance: GUANFACINE
  9. HIZENTRA [Suspect]
     Active Substance: HUMAN IMMUNOGLOBULIN G
     Dosage: UNK
     Route: 058
  10. PLAVIX [Concomitant]
     Active Substance: CLOPIDOGREL BISULFATE
  11. LOSARTAN. [Concomitant]
     Active Substance: LOSARTAN
  12. GEMFIBROZIL. [Concomitant]
     Active Substance: GEMFIBROZIL
  13. FERROUS SULFATE. [Concomitant]
     Active Substance: FERROUS SULFATE
  14. HIZENTRA [Suspect]
     Active Substance: HUMAN IMMUNOGLOBULIN G
     Indication: PRODUCT USED FOR UNKNOWN INDICATION
     Dosage: 10 G, UNK
     Route: 058
     Dates: start: 20111221
  15. PANTOPRAZOLE [Concomitant]
     Active Substance: PANTOPRAZOLE SODIUM
  16. PREDNISONE. [Concomitant]
     Active Substance: PREDNISONE
  17. OMEPRAZOLE. [Concomitant]
     Active Substance: OMEPRAZOLE
  18. TACROLIMUS. [Concomitant]
     Active Substance: TACROLIMUS
  19. AMITRIPTYLINE [Concomitant]
     Active Substance: AMITRIPTYLINE
  20. ACETAMINOPHEN. [Concomitant]
     Active Substance: ACETAMINOPHEN
  21. DIPHENHYDRAMINE. [Concomitant]
     Active Substance: DIPHENHYDRAMINE
  22. GLIMEPIRIDE. [Concomitant]
     Active Substance: GLIMEPIRIDE
  23. AMLODIPINE [Concomitant]
     Active Substance: AMLODIPINE BESYLATE
  24. NUVAIL [Concomitant]
     Active Substance: DEVICE
  25. LIPITOR [Concomitant]
     Active Substance: ATORVASTATIN CALCIUM
  26. SULFAMETHOXAZOLE W/TRIMETHOPRIM [Concomitant]
     Active Substance: SULFAMETHOXAZOLE\TRIMETHOPRIM
  27. ATENOLOL. [Concomitant]
     Active Substance: ATENOLOL
  28. ASPIRIN. [Concomitant]
     Active Substance: ASPIRIN

REACTIONS (3)
  - Stent placement [Unknown]
  - Myocardial infarction [Unknown]
  - Pneumonia [Unknown]
